FAERS Safety Report 5872724-0 (Version None)
Quarter: 2008Q3

REPORT INFORMATION
  Report Type: 
  Country: None (occurrence: None)
  Receive Date: 20080905
  Receipt Date: 20080829
  Transmission Date: 20090109
  Serious: Yes (Other)
  Sender: FDA-Public Use
  Company Number: BR-GILEAD-2008-0017201

PATIENT
  Age: 33 Year
  Sex: Female

DRUGS (5)
  1. VIREAD [Suspect]
     Indication: HIV INFECTION
     Route: 048
     Dates: start: 20080623, end: 20080623
  2. CEFAZOLIN [Concomitant]
  3. ZIDOVUDINE [Concomitant]
     Indication: HIV INFECTION
  4. LAMIVUDINE [Concomitant]
     Indication: HIV INFECTION
  5. NEVIRAPINE [Concomitant]
     Indication: HIV INFECTION

REACTIONS (2)
  - POST PROCEDURAL HAEMORRHAGE [None]
  - PREGNANCY [None]
